FAERS Safety Report 6703747-7 (Version None)
Quarter: 2010Q2

REPORT INFORMATION
  Report Type: 
  Country: None (occurrence: None)
  Receive Date: 20100430
  Receipt Date: 20100421
  Transmission Date: 20101027
  Serious: Yes (Hospitalization)
  Sender: FDA-Public Use
  Company Number: US-SANOFI-AVENTIS-2010SA023464

PATIENT
  Age: 62 Year
  Sex: Male

DRUGS (13)
  1. MULTAQ [Suspect]
     Indication: ATRIAL FIBRILLATION
     Route: 048
     Dates: start: 20091231, end: 20091231
  2. MULTAQ [Suspect]
     Indication: ARRHYTHMIA
     Route: 048
     Dates: start: 20091231, end: 20091231
  3. SOTALOL HCL [Concomitant]
  4. COUMADIN [Concomitant]
  5. DIGOXIN [Concomitant]
  6. SIMVASTATIN [Concomitant]
  7. GENERAL NUTRIENTS [Concomitant]
  8. MULTI-VITAMINS [Concomitant]
  9. VITAMIN E [Concomitant]
  10. VITAMIN C [Concomitant]
  11. GLUCOSAMINE W/CHONDROITIN [Concomitant]
  12. CALCIUM [Concomitant]
  13. ZYRTEC [Concomitant]

REACTIONS (2)
  - MALAISE [None]
  - TACHYCARDIA [None]
